FAERS Safety Report 5349778-3 (Version None)
Quarter: 2007Q2

REPORT INFORMATION
  Report Type: 
  Country: None (occurrence: None)
  Receive Date: 20070607
  Receipt Date: 20070525
  Transmission Date: 20071010
  Serious: Yes (Hospitalization)
  Sender: FDA-Public Use
  Company Number: JP-PFIZER INC-2007025419

PATIENT
  Sex: Male

DRUGS (4)
  1. MIGLITOL TABLET [Suspect]
     Indication: DIABETES MELLITUS NON-INSULIN-DEPENDENT
     Dosage: DAILY DOSE:150MG
     Route: 048
     Dates: start: 20070216, end: 20070314
  2. URSO 250 [Concomitant]
     Dosage: DAILY DOSE:150MG
     Route: 048
  3. NORVASC [Concomitant]
     Dosage: DAILY DOSE:5MG
     Route: 048
     Dates: start: 20050701, end: 20070314
  4. TAPAZOLE [Concomitant]
     Dosage: DAILY DOSE:15MG
     Route: 048
     Dates: start: 20050701

REACTIONS (3)
  - ILEUS PARALYTIC [None]
  - INTESTINAL OBSTRUCTION [None]
  - PNEUMONIA [None]
